FAERS Safety Report 7753072-0 (Version None)
Quarter: 2011Q3

REPORT INFORMATION
  Report Type: 
  Country: None (occurrence: None)
  Receive Date: 20110913
  Receipt Date: 20110830
  Transmission Date: 20111222
  Serious: Yes (Hospitalization, Other)
  Sender: FDA-Public Use
  Company Number: 2011MA012748

PATIENT
  Age: 27 Year
  Sex: Male

DRUGS (2)
  1. ZOLPIDEM TARTRATE [Suspect]
     Indication: ANXIETY
     Dosage: 2000 MG;HS;UNK
  2. ZOLPIDEM TARTRATE [Suspect]
     Indication: INSOMNIA
     Dosage: 2000 MG;HS;UNK

REACTIONS (8)
  - CONFUSIONAL STATE [None]
  - DELIRIUM [None]
  - INSOMNIA [None]
  - CHEST DISCOMFORT [None]
  - SINUS TACHYCARDIA [None]
  - POOR QUALITY SLEEP [None]
  - TACHYCARDIA [None]
  - ANXIETY [None]
